FAERS Safety Report 13658154 (Version 1)
Quarter: 2017Q2

REPORT INFORMATION
  Report Type: Report from Study
  Country: US (occurrence: US)
  Receive Date: 20170616
  Receipt Date: 20170616
  Transmission Date: 20170830
  Serious: Yes (Death)
  Sender: FDA-Public Use
  Company Number: US-TORRENT-00002892

PATIENT
  Age: 19 Year
  Sex: Female

DRUGS (6)
  1. AMFETAMINE SULFATE [Suspect]
     Active Substance: AMPHETAMINE SULFATE
  2. METHADONE [Suspect]
     Active Substance: METHADONE HYDROCHLORIDE
  3. FLUOXETINE [Suspect]
     Active Substance: FLUOXETINE HYDROCHLORIDE
  4. SERTRALINE HCL [Suspect]
     Active Substance: SERTRALINE HYDROCHLORIDE
  5. BENZODIAZEPINE [Suspect]
     Active Substance: BENZODIAZEPINE
  6. ALCOHOL. [Suspect]
     Active Substance: ALCOHOL

REACTIONS (2)
  - Cardio-respiratory arrest [Fatal]
  - Toxicity to various agents [Fatal]
